FAERS Safety Report 9922038 (Version 1)
Quarter: 2014Q1

REPORT INFORMATION
  Report Type: Spontaneous
  Country: US (occurrence: None)
  Receive Date: 20140221
  Receipt Date: 20140221
  Transmission Date: 20141002
  Serious: No
  Sender: FDA-Public Use
  Company Number: None

PATIENT
  Age: 44 Year
  Sex: Female
  Weight: 53.07 kg

DRUGS (8)
  1. MIRVASO [Suspect]
     Indication: ROSACEA
     Dosage: 5 MG PEA SIZE TOPICALLY 1 TIME DAILEY ON THE SKIN
     Route: 061
     Dates: start: 20040117, end: 20040117
  2. MIRVASO [Suspect]
     Indication: ERYTHEMA
     Dosage: 5 MG PEA SIZE TOPICALLY 1 TIME DAILEY ON THE SKIN
     Route: 061
     Dates: start: 20040117, end: 20040117
  3. MINOCYCLINE [Concomitant]
  4. SPIRONALACTONE [Concomitant]
  5. FINACEA [Concomitant]
  6. ACZONE [Concomitant]
  7. DAILY MULT [Concomitant]
  8. B-12 [Concomitant]

REACTIONS (5)
  - Application site erythema [None]
  - Application site inflammation [None]
  - Condition aggravated [None]
  - Application site swelling [None]
  - Application site pain [None]
